FAERS Safety Report 9709129 (Version 4)
Quarter: 2014Q1

REPORT INFORMATION
  Report Type: Report from Study
  Country: CA (occurrence: CA)
  Receive Date: 20131125
  Receipt Date: 20140131
  Transmission Date: 20141002
  Serious: Yes (Hospitalization)
  Sender: FDA-Public Use
  Company Number: CA-ABBVIE-13P-028-1170801-00

PATIENT
  Age: 36 Year
  Sex: Female
  Weight: 52.66 kg

DRUGS (1)
  1. HUMIRA [Suspect]
     Indication: CROHN^S DISEASE
     Dosage: ONCE
     Route: 058
     Dates: start: 20131105, end: 20131105

REACTIONS (13)
  - Fatigue [Not Recovered/Not Resolved]
  - Paraesthesia [Not Recovered/Not Resolved]
  - Hypoaesthesia [Not Recovered/Not Resolved]
  - Pain in extremity [Not Recovered/Not Resolved]
  - Muscle spasms [Not Recovered/Not Resolved]
  - Abasia [Unknown]
  - Nervous system disorder [Unknown]
  - Sensory loss [Unknown]
  - Aphasia [Unknown]
  - Muscular weakness [Unknown]
  - Coordination abnormal [Unknown]
  - Dysarthria [Unknown]
  - Neurological symptom [Recovered/Resolved]
